FAERS Safety Report 7329446-9 (Version None)
Quarter: 2011Q1

REPORT INFORMATION
  Report Type: 
  Country: None (occurrence: None)
  Receive Date: 20110303
  Receipt Date: 20110228
  Transmission Date: 20110831
  Serious: Yes (Other)
  Sender: FDA-Public Use
  Company Number: US-PFIZER INC-2011043691

PATIENT
  Sex: Female
  Weight: 63.492 kg

DRUGS (9)
  1. VENTOLIN [Concomitant]
     Indication: RESPIRATORY DISORDER
     Dosage: UNK
     Route: 055
  2. ALISKIREN [Concomitant]
     Indication: BLOOD PRESSURE ABNORMAL
     Dosage: UNK
     Route: 048
  3. VALACICLOVIR [Concomitant]
     Dosage: UNK
  4. SYMBICORT [Concomitant]
     Indication: RESPIRATORY DISORDER
     Dosage: UNK
     Route: 055
  5. CELEBREX [Suspect]
     Indication: ARTHRITIS
     Dosage: UNK
     Route: 048
     Dates: start: 20080101, end: 20090101
  6. DIOVAN HCT [Concomitant]
     Indication: BLOOD PRESSURE ABNORMAL
     Dosage: VALSARTAN 320MG /HYDROCHLOROTHIAZIDE 25 MG
     Route: 048
  7. SPIRIVA [Concomitant]
     Indication: RESPIRATORY DISORDER
     Dosage: UNK
  8. CELEBREX [Suspect]
     Indication: GAIT DISTURBANCE
  9. FEXOFENADINE [Concomitant]
     Dosage: UNK

REACTIONS (5)
  - GASTRIC HAEMORRHAGE [None]
  - INFECTION [None]
  - WEIGHT DECREASED [None]
  - PROSTHESIS IMPLANTATION [None]
  - GASTRIC DISORDER [None]
